FAERS Safety Report 5165425-8 (Version None)
Quarter: 2006Q4

REPORT INFORMATION
  Report Type: 
  Country: None (occurrence: None)
  Receive Date: 20061206
  Receipt Date: 20061115
  Transmission Date: 20070319
  Serious: Yes (Death)
  Sender: FDA-Public Use
  Company Number: DE-AVENTIS-200613331DE

PATIENT
  Age: 71 Year
  Sex: Female
  Weight: 85 kg

DRUGS (2)
  1. CLEXANE [Suspect]
     Indication: POSTOPERATIVE THROMBOSIS
     Route: 058
     Dates: start: 20060801, end: 20060803
  2. ASPIRIN [Concomitant]
     Dosage: DOSE: NOT REPORTED

REACTIONS (3)
  - DYSPNOEA [None]
  - PULMONARY EMBOLISM [None]
  - RESPIRATORY FAILURE [None]
